FAERS Safety Report 4642894-0 (Version None)
Quarter: 2005Q2

REPORT INFORMATION
  Report Type: 
  Country: None (occurrence: None)
  Receive Date: 20050421
  Receipt Date: 20050408
  Transmission Date: 20051028
  Serious: Yes (Hospitalization)
  Sender: FDA-Public Use
  Company Number: 26483

PATIENT
  Age: 70 Year
  Sex: Male

DRUGS (1)
  1. ALDARA [Suspect]
     Indication: BASAL CELL CARCINOMA
     Dosage: 3 APPLICATIONS WEEKLY (1 DOSAGE FORMS, 3 IN 1 WEEK(S)), TOPICAL
     Route: 061
     Dates: start: 20050114, end: 20050123

REACTIONS (2)
  - APPLICATION SITE ULCER [None]
  - ERYTHEMA MULTIFORME [None]
